FAERS Safety Report 5940375-5 (Version None)
Quarter: 2008Q4

REPORT INFORMATION
  Report Type: 
  Country: None (occurrence: None)
  Receive Date: 20081104
  Receipt Date: 20081022
  Transmission Date: 20090506
  Serious: Yes (Hospitalization, Disabling)
  Sender: FDA-Public Use
  Company Number: ES-ROCHE-593024

PATIENT
  Sex: Male
  Weight: 96 kg

DRUGS (3)
  1. CAPECITABINE [Suspect]
     Dosage: DOSAGE FORM : PILLS
     Route: 048
     Dates: start: 20080313, end: 20080714
  2. BEVACIZUMAB [Suspect]
     Dosage: DOSAGE FORM: INFUSION FREQUENCY : 14/D
     Route: 042
     Dates: start: 20080313, end: 20080630
  3. OXALIPLATIN [Suspect]
     Dosage: DOSAGE FORM: INFUSION FREQUENCY : 21/D
     Route: 042
     Dates: start: 20080313, end: 20080513

REACTIONS (2)
  - CELLULITIS [None]
  - POSTOPERATIVE ABSCESS [None]
